FAERS Safety Report 5329617-7 (Version None)
Quarter: 2007Q2

REPORT INFORMATION
  Report Type: 
  Country: None (occurrence: None)
  Receive Date: 20070227
  Receipt Date: 20060112
  Transmission Date: 20071010
  Serious: Yes (Other)
  Sender: FDA-Public Use
  Company Number: 399998

PATIENT
  Sex: Female
  Weight: 3.2 kg

DRUGS (3)
  1. ACCUTANE [Suspect]
     Indication: ACNE
     Dosage: 100 MG DAILY ORAL
     Route: 048
     Dates: start: 20040915, end: 20050214
  2. PAIN MEDICATION NOS (ANALGESIC NOS) [Concomitant]
  3. CONTRACEPTIVE PILL NOS (ORAL CONTRACEPTIVE NOS) [Concomitant]

REACTIONS (1)
  - NORMAL NEWBORN [None]
